FAERS Safety Report 6146630-0 (Version None)
Quarter: 2009Q2

REPORT INFORMATION
  Report Type: 
  Country: None (occurrence: None)
  Receive Date: 20090403
  Receipt Date: 20090403
  Transmission Date: 20091009
  Serious: No
  Sender: FDA-Public Use
  Company Number: None

PATIENT
  Age: 67 Year
  Sex: Female
  Weight: 84 kg

DRUGS (1)
  1. CHLORHEXIDINE SPONGE [Suspect]
     Indication: PREOPERATIVE CARE
     Dosage: X4 SPONGES X1 TOPICAL
     Route: 061
     Dates: start: 20090326

REACTIONS (4)
  - DRY SKIN [None]
  - HEART RATE INCREASED [None]
  - RASH ERYTHEMATOUS [None]
  - SKIN EXFOLIATION [None]
